FAERS Safety Report 5657374-3 (Version None)
Quarter: 2008Q1

REPORT INFORMATION
  Report Type: 
  Country: None (occurrence: None)
  Receive Date: 20080310
  Receipt Date: 20080228
  Transmission Date: 20080703
  Serious: Yes (Other)
  Sender: FDA-Public Use
  Company Number: PHBS2008DK02944

PATIENT
  Sex: Female

DRUGS (3)
  1. DIOVAN COMP [Suspect]
     Indication: HYPERTENSION
     Dosage: VALS 160 / HCT 25 MG/DAY
     Route: 048
  2. DIOVAN COMP [Suspect]
     Dosage: VALS 320 MG / HCT 50 MG/DAY
     Route: 048
  3. DIOVAN COMP [Suspect]
     Dosage: VALS 160 / HCT 25 MG/DAY
     Route: 048
     Dates: end: 20080227

REACTIONS (3)
  - BLOOD PRESSURE INCREASED [None]
  - DIARRHOEA [None]
  - HAEMATOCHEZIA [None]
